FAERS Safety Report 18928679 (Version 1)
Quarter: 2021Q1

REPORT INFORMATION
  Report Type: Spontaneous
  Country: US (occurrence: US)
  Receive Date: 20210223
  Receipt Date: 20210223
  Transmission Date: 20210420
  Serious: Yes (Other)
  Sender: FDA-Public Use
  Company Number: US-FRESENIUS KABI-FK202101680

PATIENT
  Age: 69 Year
  Sex: Female

DRUGS (1)
  1. BUPIVACAINE (MANUFACTURER UNKNOWN) [Suspect]
     Active Substance: BUPIVACAINE
     Indication: SPINAL ANAESTHESIA
     Route: 050

REACTIONS (2)
  - Meningitis chemical [Recovering/Resolving]
  - Vasospasm [Recovering/Resolving]
